FAERS Safety Report 21615528 (Version 3)
Quarter: 2022Q4

REPORT INFORMATION
  Report Type: Report from Study
  Country: GB (occurrence: GB)
  Receive Date: 20221118
  Receipt Date: 20221229
  Transmission Date: 20230113
  Serious: Yes (Hospitalization)
  Sender: FDA-Public Use
  Company Number: GB-ALNYLAM PHARMACEUTICALS, INC.-ALN-2022-003977

PATIENT

DRUGS (2)
  1. GIVLAARI [Suspect]
     Active Substance: GIVOSIRAN SODIUM
     Indication: Porphyria acute
     Dosage: 185 MILLIGRAM, MONTHLY
     Route: 058
     Dates: start: 20220819
  2. CARBOHYDRATES [Concomitant]
     Active Substance: CARBOHYDRATES
     Indication: Product used for unknown indication
     Dosage: 25 PERCENT, PRN
     Route: 048
     Dates: start: 20211111

REACTIONS (1)
  - Crohn^s disease [Recovering/Resolving]

NARRATIVE: CASE EVENT DATE: 20221104
